FAERS Safety Report 17876902 (Version 1)
Quarter: 2020Q2

REPORT INFORMATION
  Report Type: Report from Study
  Country: CO (occurrence: CO)
  Receive Date: 20200609
  Receipt Date: 20200609
  Transmission Date: 20200714
  Serious: Yes (Hospitalization)
  Sender: FDA-Public Use
  Company Number: NVSC2020CO158565

PATIENT

DRUGS (1)
  1. JADENU [Suspect]
     Active Substance: DEFERASIROX
     Indication: ANAEMIA
     Dosage: 2 DF, QD (STARTED ONE YEAR AGO)
     Route: 065

REACTIONS (3)
  - Infection [Unknown]
  - Off label use [Unknown]
  - Skin ulcer [Unknown]
